FAERS Safety Report 18169887 (Version 2)
Quarter: 2021Q1

REPORT INFORMATION
  Report Type: Report from Study
  Country: IT (occurrence: IT)
  Receive Date: 20200819
  Receipt Date: 20210320
  Transmission Date: 20210419
  Serious: Yes (Hospitalization, Other)
  Sender: FDA-Public Use
  Company Number: IT-ACCORD-195692

PATIENT
  Age: 44 Year
  Sex: Female

DRUGS (2)
  1. SERTRALINE [Suspect]
     Active Substance: SERTRALINE HYDROCHLORIDE
     Indication: ADJUSTMENT DISORDER
     Route: 048
     Dates: start: 20200630, end: 20200630
  2. OLANZAPINE. [Suspect]
     Active Substance: OLANZAPINE
     Indication: ADJUSTMENT DISORDER
     Route: 048
     Dates: start: 20200630, end: 20200630

REACTIONS (6)
  - Drug abuse [Unknown]
  - Nausea [Recovering/Resolving]
  - Speech disorder [Recovering/Resolving]
  - Bradyphrenia [Recovering/Resolving]
  - Vomiting [Recovering/Resolving]
  - Hypokinesia [Recovering/Resolving]

NARRATIVE: CASE EVENT DATE: 20200630
